FAERS Safety Report 15664434 (Version 1)
Quarter: 2018Q4

REPORT INFORMATION
  Report Type: Spontaneous
  Country: US (occurrence: US)
  Receive Date: 20181128
  Receipt Date: 20181128
  Transmission Date: 20190205
  Serious: Yes (Other)
  Sender: FDA-Public Use
  Company Number: US-GLAXOSMITHKLINE-US2018211039

PATIENT
  Age: 61 Year
  Sex: Male

DRUGS (1)
  1. BREO ELLIPTA [Suspect]
     Active Substance: FLUTICASONE FUROATE\VILANTEROL TRIFENATATE
     Indication: ASTHMA
     Dosage: 1 PUFF(S), QD
     Route: 055

REACTIONS (4)
  - Oesophageal pain [Unknown]
  - Hernia hiatus repair [Unknown]
  - Oesophageal candidiasis [Not Recovered/Not Resolved]
  - Endoscopy [Unknown]

NARRATIVE: CASE EVENT DATE: 20180911
